FAERS Safety Report 8376496-X (Version None)
Quarter: 2012Q2

REPORT INFORMATION
  Report Type: 
  Country: None (occurrence: None)
  Receive Date: 20120522
  Receipt Date: 20120515
  Transmission Date: 20120825
  Serious: Yes (Hospitalization)
  Sender: FDA-Public Use
  Company Number: US-BAYER-2012-020481

PATIENT
  Age: 28 Year
  Sex: Female
  Weight: 88.435 kg

DRUGS (30)
  1. YASMIN [Suspect]
  2. YASMIN [Suspect]
  3. DROSPIRENONE AND ETHINYL ESTRADIOL [Suspect]
     Indication: CONTRACEPTION
     Dosage: UNK
     Dates: start: 20000101, end: 20120201
  4. DROSPIRENONE AND ETHINYL ESTRADIOL [Suspect]
  5. DROSPIRENONE AND ETHINYL ESTRADIOL [Suspect]
  6. GAS-X [Concomitant]
     Indication: FLATULENCE
     Dosage: 80 MG, PRN
     Route: 048
     Dates: start: 20120101
  7. NEXIUM [Concomitant]
     Indication: DYSPEPSIA
     Dosage: UNK UNK, BID
     Route: 048
     Dates: start: 20100101
  8. YASMIN [Suspect]
  9. YASMIN [Suspect]
  10. FLEXERIL [Concomitant]
     Indication: MUSCLE SPASMS
     Dosage: UNK UNK, PRN
     Dates: start: 20100101
  11. IBUPROFEN [Concomitant]
     Indication: PAIN
     Dosage: 400 MG, PRN
     Route: 048
  12. YASMIN [Suspect]
  13. DROSPIRENONE AND ETHINYL ESTRADIOL [Suspect]
  14. TYLENOL [Concomitant]
     Dosage: UNK UNK, PRN
     Dates: start: 20100617
  15. YASMIN [Suspect]
     Indication: CONTRACEPTION
     Dosage: UNK
     Dates: start: 20000101, end: 20120201
  16. YASMIN [Suspect]
  17. MAXALT [Concomitant]
     Indication: MIGRAINE
     Dosage: 5 MG, TABLET
     Route: 048
     Dates: start: 19980101
  18. TYLENOL SINUS MEDICATION [Concomitant]
     Dosage: 500 MG, PRN
  19. XANAX [Concomitant]
     Indication: ANXIETY
     Dosage: 0.25 MG, PRN
     Route: 048
  20. YASMIN [Suspect]
  21. DROSPIRENONE AND ETHINYL ESTRADIOL [Suspect]
  22. TYLENOL SINUS MEDICATION [Concomitant]
     Indication: SINUS HEADACHE
     Dosage: 30 MG, PRN
  23. YASMIN [Suspect]
  24. DROSPIRENONE AND ETHINYL ESTRADIOL [Suspect]
  25. ZANTAC [Concomitant]
     Dosage: 75 MG, BID
     Route: 048
     Dates: start: 20100617
  26. IMODIUM [Concomitant]
     Indication: DIARRHOEA
     Dosage: 2 MG, PRN
     Route: 048
     Dates: start: 20120101
  27. SERTRALINE HYDROCHLORIDE [Concomitant]
     Dosage: 50 MG, UNK
     Dates: start: 20100501
  28. DROSPIRENONE AND ETHINYL ESTRADIOL [Suspect]
  29. DROSPIRENONE AND ETHINYL ESTRADIOL [Suspect]
  30. ZOLOFT [Concomitant]
     Indication: PROPHYLAXIS
     Dosage: 50 MG, HS
     Route: 048

REACTIONS (9)
  - CHOLECYSTITIS ACUTE [None]
  - EMOTIONAL DISTRESS [None]
  - DIARRHOEA [None]
  - GASTROINTESTINAL DISORDER [None]
  - DEPRESSION [None]
  - FEAR OF DEATH [None]
  - MUSCULOSKELETAL PAIN [None]
  - CHOLELITHIASIS [None]
  - ABDOMINAL PAIN UPPER [None]
